FAERS Safety Report 9919407 (Version 3)
Quarter: 2014Q2

REPORT INFORMATION
  Report Type: Spontaneous
  Country: US (occurrence: US)
  Receive Date: 20140224
  Receipt Date: 20140401
  Transmission Date: 20141212
  Serious: Yes (Death)
  Sender: FDA-Public Use
  Company Number: US-009507513-1402USA010991

PATIENT
  Sex: Male

DRUGS (1)
  1. EMEND [Suspect]
     Indication: NAUSEA
     Dosage: DAY ONE 125 MG/DAY TWO 80 MG /DAY THREE 80 MG / EVERY THREE WEEKS
     Route: 048
     Dates: start: 20130322

REACTIONS (1)
  - Death [Fatal]
